FAERS Safety Report 4478655-5 (Version None)
Quarter: 2004Q4

REPORT INFORMATION
  Report Type: 
  Country: None (occurrence: None)
  Receive Date: 20040923
  Receipt Date: 20040526
  Transmission Date: 20050328
  Serious: No
  Sender: FDA-Public Use
  Company Number: USA040568700

PATIENT
  Age: 72 Year
  Sex: Female

DRUGS (2)
  1. FORTEO [Suspect]
     Indication: OSTEOPOROSIS
     Dates: start: 20040501
  2. PREDNISONE [Concomitant]

REACTIONS (1)
  - INJECTION SITE ERYTHEMA [None]
